FAERS Safety Report 15460738 (Version 2)
Quarter: 2018Q4

REPORT INFORMATION
  Report Type: Report from Study
  Country: JP (occurrence: JP)
  Receive Date: 20181003
  Receipt Date: 20181010
  Transmission Date: 20190204
  Serious: Yes (Hospitalization)
  Sender: FDA-Public Use
  Company Number: PHJP2018JP016921

PATIENT
  Age: 64 Year
  Sex: Female

DRUGS (7)
  1. MEKINIST [Suspect]
     Active Substance: TRAMETINIB DIMETHYL SULFOXIDE
     Dosage: 2 MG, UNK
     Route: 048
     Dates: start: 20171031, end: 20171202
  2. MEKINIST [Suspect]
     Active Substance: TRAMETINIB DIMETHYL SULFOXIDE
     Dosage: 2 MG, UNK
     Route: 048
     Dates: start: 20171213, end: 20180525
  3. FERON [Concomitant]
     Active Substance: INTERFERON BETA
     Indication: MALIGNANT MELANOMA STAGE III
     Dosage: 3,000,000 INTERNATIONAL UNITS, QW
     Route: 065
     Dates: end: 20180206
  4. TAFINLAR [Suspect]
     Active Substance: DABRAFENIB MESYLATE
     Indication: MALIGNANT MELANOMA STAGE III
     Dosage: 300 MG, UNK
     Route: 048
     Dates: start: 20170926, end: 20171010
  5. TAFINLAR [Suspect]
     Active Substance: DABRAFENIB MESYLATE
     Dosage: 300 MG, UNK
     Route: 048
     Dates: start: 20171031, end: 20171202
  6. TAFINLAR [Suspect]
     Active Substance: DABRAFENIB MESYLATE
     Dosage: 300 MG, UNK
     Route: 048
     Dates: start: 20171213, end: 20180525
  7. MEKINIST [Suspect]
     Active Substance: TRAMETINIB DIMETHYL SULFOXIDE
     Indication: MALIGNANT MELANOMA STAGE III
     Dosage: 2 MG, UNK
     Route: 048
     Dates: start: 20170926, end: 20171010

REACTIONS (3)
  - Cellulitis [Recovered/Resolved]
  - Pyrexia [Unknown]
  - Urinary tract infection [Recovered/Resolved]

NARRATIVE: CASE EVENT DATE: 20171010
